FAERS Safety Report 12614817 (Version 1)
Quarter: 2016Q3

REPORT INFORMATION
  Report Type: Spontaneous
  Country: PT (occurrence: PT)
  Receive Date: 20160802
  Receipt Date: 20160802
  Transmission Date: 20161109
  Serious: Yes (Hospitalization, Other)
  Sender: FDA-Public Use
  Company Number: PT-TEVA-681528ISR

PATIENT
  Age: 53 Year
  Sex: Female

DRUGS (7)
  1. SUCCINYLCHOLINE [Concomitant]
     Active Substance: SUCCINYLCHOLINE
  2. RISPERIDONE. [Interacting]
     Active Substance: RISPERIDONE
     Indication: MAJOR DEPRESSION
  3. THIOPENTAL [Concomitant]
     Active Substance: THIOPENTAL
  4. RISPERIDONE. [Interacting]
     Active Substance: RISPERIDONE
     Indication: MAJOR DEPRESSION
  5. BUPROPION. [Interacting]
     Active Substance: BUPROPION
     Indication: MAJOR DEPRESSION
     Dosage: SLOW RELEASE (TITRATED AT 300 MG/DAY)
  6. ATROPINE. [Concomitant]
     Active Substance: ATROPINE
  7. SERTRALINE [Suspect]
     Active Substance: SERTRALINE HYDROCHLORIDE
     Indication: MAJOR DEPRESSION

REACTIONS (2)
  - Generalised tonic-clonic seizure [Recovered/Resolved]
  - Drug interaction [Recovered/Resolved]
